FAERS Safety Report 6105003-7 (Version None)
Quarter: 2009Q1

REPORT INFORMATION
  Report Type: 
  Country: None (occurrence: None)
  Receive Date: 20090304
  Receipt Date: 20090304
  Transmission Date: 20090719
  Serious: Yes (Hospitalization)
  Sender: FDA-Public Use
  Company Number: None

PATIENT
  Sex: Male
  Weight: 69.5 kg

DRUGS (1)
  1. CISPLATIN [Suspect]
     Dosage: 193 MG
     Dates: end: 20090120

REACTIONS (6)
  - DEHYDRATION [None]
  - EYES SUNKEN [None]
  - INADEQUATE ANALGESIA [None]
  - LACRIMATION INCREASED [None]
  - OROPHARYNGEAL PAIN [None]
  - PALLOR [None]
